FAERS Safety Report 5215960-9 (Version None)
Quarter: 2007Q1

REPORT INFORMATION
  Report Type: 
  Country: None (occurrence: None)
  Receive Date: 20070123
  Receipt Date: 20070116
  Transmission Date: 20070707
  Serious: Yes (Other)
  Sender: FDA-Public Use
  Company Number: US-BRISTOL-MYERS SQUIBB COMPANY-13644430

PATIENT
  Age: 53 Year
  Sex: Male

DRUGS (5)
  1. EFAVIRENZ [Suspect]
     Indication: HIV INFECTION
  2. LAMIVUDINE + ZIDOVUDINE [Suspect]
     Indication: HIV INFECTION
  3. COTRIM [Concomitant]
  4. FLUCONAZOLE [Concomitant]
  5. SERTRALINE [Concomitant]

REACTIONS (1)
  - PYOGENIC GRANULOMA [None]
